FAERS Safety Report 4474592-0 (Version None)
Quarter: 2004Q4

REPORT INFORMATION
  Report Type: 
  Country: None (occurrence: None)
  Receive Date: 20041008
  Receipt Date: 20040921
  Transmission Date: 20050328
  Serious: Yes (Hospitalization)
  Sender: FDA-Public Use
  Company Number: B0345788A

PATIENT
  Age: 75 Year
  Sex: Female

DRUGS (2)
  1. CHLORPROMAZINE HCL [Suspect]
  2. ANTIDEPRESSANT [Concomitant]

REACTIONS (5)
  - ANAEMIA [None]
  - C-REACTIVE PROTEIN INCREASED [None]
  - COAGULOPATHY [None]
  - DEEP VEIN THROMBOSIS [None]
  - FIBRINOLYSIS [None]
